FAERS Safety Report 14647733 (Version 1)
Quarter: 2018Q1

REPORT INFORMATION
  Report Type: Spontaneous
  Country: ES (occurrence: ES)
  Receive Date: 20180316
  Receipt Date: 20180316
  Transmission Date: 20180509
  Serious: Yes (Death, Hospitalization)
  Sender: FDA-Public Use
  Company Number: ES-TEVA-2018-ES-868261

PATIENT
  Age: 92 Year
  Sex: Female

DRUGS (10)
  1. OMEPRAZOL (2141A) [Suspect]
     Active Substance: OMEPRAZOLE
     Indication: SUICIDE ATTEMPT
     Route: 048
     Dates: start: 20170611, end: 20170611
  2. RAMIPRIL (2497A) [Suspect]
     Active Substance: RAMIPRIL
     Indication: SUICIDE ATTEMPT
     Route: 048
     Dates: start: 20170611, end: 20170611
  3. ZOLPIDEM [Suspect]
     Active Substance: ZOLPIDEM\ZOLPIDEM TARTRATE
     Indication: SUICIDE ATTEMPT
     Route: 048
     Dates: start: 20170611, end: 20170611
  4. METFORMINA (1359A) [Suspect]
     Active Substance: METFORMIN HYDROCHLORIDE
     Indication: SUICIDE ATTEMPT
     Route: 048
     Dates: start: 20170611, end: 20170611
  5. SIMVASTATINA (1023A) [Suspect]
     Active Substance: SIMVASTATIN
     Indication: SUICIDE ATTEMPT
     Route: 048
     Dates: start: 20170611, end: 20170611
  6. OLANZAPINA (2770A) [Suspect]
     Active Substance: OLANZAPINE
     Indication: SUICIDE ATTEMPT
     Route: 048
     Dates: start: 20170611, end: 20170611
  7. PREGABALINA (3897A) [Suspect]
     Active Substance: PREGABALIN
     Indication: SUICIDE ATTEMPT
     Route: 048
     Dates: start: 20170611, end: 20170611
  8. PARACETAMOL (12A) [Suspect]
     Active Substance: ACETAMINOPHEN
     Indication: SUICIDE ATTEMPT
     Route: 048
     Dates: start: 20170611, end: 20170611
  9. CITALOPRAM [Suspect]
     Active Substance: CITALOPRAM HYDROBROMIDE
     Indication: SUICIDE ATTEMPT
     Route: 048
     Dates: start: 20170611, end: 20170611
  10. ALPRAZOLAM (99A) [Suspect]
     Active Substance: ALPRAZOLAM
     Indication: SUICIDE ATTEMPT
     Route: 048
     Dates: start: 20170611, end: 20170611

REACTIONS (2)
  - Intentional overdose [Fatal]
  - Completed suicide [None]

NARRATIVE: CASE EVENT DATE: 20170611
